FAERS Safety Report 4375795-6 (Version None)
Quarter: 2004Q2

REPORT INFORMATION
  Report Type: 
  Country: None (occurrence: None)
  Receive Date: 20040611
  Receipt Date: 20040602
  Transmission Date: 20050107
  Serious: Yes (Death, Hospitalization, Other)
  Sender: FDA-Public Use
  Company Number: PHBS2004DE07411

PATIENT
  Age: 29 Year
  Sex: Male

DRUGS (6)
  1. CYCLOSPORINE [Suspect]
     Indication: LIVER TRANSPLANT
     Dates: start: 19990601, end: 20000601
  2. METHYLPREDNISOLONE [Suspect]
     Indication: LIVER TRANSPLANT
  3. AZATHIOPRINE [Suspect]
     Indication: LIVER TRANSPLANT
  4. CIPROFLOXACIN [Concomitant]
  5. AMOXICILLIN AND CLAVULANATE POTASSIUM [Concomitant]
  6. CIPROFLOXACIN [Concomitant]

REACTIONS (22)
  - ALPHA HAEMOLYTIC STREPTOCOCCAL INFECTION [None]
  - ASPERGILLOSIS [None]
  - BILE DUCT STENOSIS [None]
  - BILIARY SEPSIS [None]
  - BLOOD BILIRUBIN INCREASED [None]
  - BORDETELLA INFECTION [None]
  - C-REACTIVE PROTEIN INCREASED [None]
  - CANDIDIASIS [None]
  - CHOLANGITIS CHRONIC [None]
  - CHOLESTASIS [None]
  - DILATATION INTRAHEPATIC DUCT ACQUIRED [None]
  - DRUG LEVEL FLUCTUATING [None]
  - ENTEROCOCCAL INFECTION [None]
  - GENERAL PHYSICAL HEALTH DETERIORATION [None]
  - GRAFT DYSFUNCTION [None]
  - HEPATIC ARTERY OCCLUSION [None]
  - HEPATIC INFARCTION [None]
  - HEPATOCELLULAR DAMAGE [None]
  - LIVER TRANSPLANT [None]
  - LIVER TRANSPLANT REJECTION [None]
  - MULTI-ORGAN FAILURE [None]
  - PNEUMONIA ASPERGILLUS [None]
